FAERS Safety Report 8782808 (Version 1)
Quarter: 2012Q4

REPORT INFORMATION
  Report Type: 
  Country: US (occurrence: US)
  Receive Date: 20120913
  Receipt Date: 20120913
  Transmission Date: 20130627
  Serious: Yes (Other)
  Sender: FDA-Public Use
  Company Number: US-GLAXOSMITHKLINE-A0993103A

PATIENT
  Age: 30 Year
  Sex: Female

DRUGS (1)
  1. ARIXTRA [Suspect]
     Indication: PRODUCT USED FOR UNKNOWN INDICATION
     Dosage: 7.5MG Unknown
     Route: 042
     Dates: start: 20120828

REACTIONS (2)
  - Cerebrovascular accident [Unknown]
  - Exposure during pregnancy [Unknown]
